FAERS Safety Report 4988534-2 (Version None)
Quarter: 2006Q2

REPORT INFORMATION
  Report Type: 
  Country: None (occurrence: None)
  Receive Date: 20060502
  Receipt Date: 20051228
  Transmission Date: 20061013
  Serious: Yes (Death)
  Sender: FDA-Public Use
  Company Number: US-GLAXOSMITHKLINE-A0587087A

PATIENT
  Age: 17 Day
  Sex: Male
  Weight: 3.3 kg

DRUGS (3)
  1. PAXIL [Suspect]
     Dosage: 20MG PER DAY
     Dates: end: 20060101
  2. ZOFRAN [Suspect]
     Dosage: 8MG SEE DOSAGE TEXT
     Dates: start: 20050225, end: 20051020
  3. PHENERGAN HCL [Concomitant]
     Dosage: 25MG SEE DOSAGE TEXT
     Dates: start: 20050225, end: 20051020

REACTIONS (3)
  - DRUG EXPOSURE DURING PREGNANCY [None]
  - DRUG EXPOSURE VIA BREAST MILK [None]
  - SUDDEN INFANT DEATH SYNDROME [None]
